FAERS Safety Report 5945888-8 (Version None)
Quarter: 2008Q4

REPORT INFORMATION
  Report Type: 
  Country: None (occurrence: None)
  Receive Date: 20081106
  Receipt Date: 20081029
  Transmission Date: 20090506
  Serious: Yes (Death, Other)
  Sender: FDA-Public Use
  Company Number: 08P-062-0484439-00

PATIENT
  Age: 4 Month
  Sex: Male

DRUGS (3)
  1. SYNAGIS [Suspect]
     Indication: DRUG USE FOR UNKNOWN INDICATION
     Dosage: (100 MG)
     Route: 058
     Dates: start: 20081010, end: 20081010
  2. ACETYLSALICYLIC ACID SRT [Concomitant]
  3. METILDIGOXIN [Concomitant]

REACTIONS (1)
  - CARDIAC DISORDER [None]
